FAERS Safety Report 13575694 (Version 1)
Quarter: 2017Q2

REPORT INFORMATION
  Report Type: Spontaneous
  Country: US (occurrence: US)
  Receive Date: 20170524
  Receipt Date: 20170524
  Transmission Date: 20170830
  Serious: No
  Sender: FDA-Public Use
  Company Number: US-ACCORD-043558

PATIENT
  Age: 53 Year
  Sex: Female
  Weight: 65 kg

DRUGS (1)
  1. QUETIAPINE. [Suspect]
     Active Substance: QUETIAPINE
     Indication: CHRONIC FATIGUE SYNDROME
     Dosage: STRENGTH: 100 MG, EVERY BEDTIME
     Route: 048
     Dates: start: 20160815, end: 20160817

REACTIONS (4)
  - Off label use [Unknown]
  - Nasal congestion [Unknown]
  - Dyspnoea [Unknown]
  - Condition aggravated [Unknown]
